FAERS Safety Report 9084475 (Version 2)
Quarter: 2014Q3

REPORT INFORMATION
  Report Type: Spontaneous
  Country: MX (occurrence: MX)
  Receive Date: 20130218
  Receipt Date: 20140721
  Transmission Date: 20150326
  Serious: Yes (Disabling, Other)
  Sender: FDA-Public Use
  Company Number: PHHY2013MX015035

PATIENT
  Age: 62 Year
  Sex: Male

DRUGS (6)
  1. RASAGILINE [Concomitant]
     Active Substance: RASAGILINE
     Indication: PARKINSON^S DISEASE
     Dosage: 0.5 UKN, QD
     Dates: start: 201201
  2. BIPERIDENO [Concomitant]
     Dosage: 1 UKN, QD
     Dates: start: 201201
  3. STALEVO [Suspect]
     Active Substance: CARBIDOPA\ENTACAPONE\LEVODOPA
     Indication: PARKINSON^S DISEASE
     Dosage: 3 DF (37.5/150/200MG), DAILY
     Route: 048
     Dates: start: 201101
  4. AMANTADINE [Concomitant]
     Active Substance: AMANTADINE
     Indication: PARKINSON^S DISEASE
     Dosage: 1 UKN, QD
     Dates: start: 201201
  5. SERTRALINE [Concomitant]
     Active Substance: SERTRALINE HYDROCHLORIDE
     Indication: DEPRESSION
     Dosage: 2 UKN, QD
     Dates: start: 2012
  6. CLONAZEPAM. [Concomitant]
     Active Substance: CLONAZEPAM
     Indication: MUSCLE RELAXANT THERAPY
     Dosage: 1 UKN, QD
     Dates: start: 2012

REACTIONS (4)
  - Impaired self-care [Not Recovered/Not Resolved]
  - Spinal pain [Recovered/Resolved]
  - Asthenia [Not Recovered/Not Resolved]
  - Dysstasia [Recovered/Resolved]

NARRATIVE: CASE EVENT DATE: 201210
